FAERS Safety Report 5143627-4 (Version None)
Quarter: 2006Q4

REPORT INFORMATION
  Report Type: 
  Country: None (occurrence: None)
  Receive Date: 20061103
  Receipt Date: 20061012
  Transmission Date: 20070319
  Serious: Yes (Death)
  Sender: FDA-Public Use
  Company Number: IE-ROCHE-468000

PATIENT
  Age: 21 Year
  Sex: Male

DRUGS (2)
  1. ROACCUTANE [Suspect]
     Indication: ACNE
     Route: 065
  2. FLIXOTIDE [Concomitant]
     Indication: ASTHMA
     Route: 055

REACTIONS (9)
  - ANHEDONIA [None]
  - CHEILITIS [None]
  - COMPLETED SUICIDE [None]
  - DECREASED APPETITE [None]
  - DRY MOUTH [None]
  - FATIGUE [None]
  - PHOTOPHOBIA [None]
  - SKIN EXFOLIATION [None]
  - SOCIAL AVOIDANT BEHAVIOUR [None]
